FAERS Safety Report 9984565 (Version 3)
Quarter: 2014Q2

REPORT INFORMATION
  Report Type: Report from Study
  Country: JP (occurrence: JP)
  Receive Date: 20140307
  Receipt Date: 20140523
  Transmission Date: 20141212
  Serious: Yes (Other)
  Sender: FDA-Public Use
  Company Number: PHHY2013JP101811

PATIENT
  Age: 58 Year
  Sex: Male
  Weight: 56 kg

DRUGS (7)
  1. GLIVEC [Suspect]
     Indication: HYPEREOSINOPHILIC SYNDROME
     Dosage: 100 MG,DAILY
     Route: 048
     Dates: start: 20120616, end: 20120623
  2. GLIVEC [Suspect]
     Dosage: 100 MG, DAILY
     Route: 048
     Dates: start: 20120801, end: 20130508
  3. GLIVEC [Suspect]
     Dosage: 100 MG, DAILY
     Route: 048
     Dates: start: 20130508
  4. HYDREA [Suspect]
     Indication: HYPEREOSINOPHILIC SYNDROME
     Dosage: 2000 MG, DAILY
     Route: 048
     Dates: start: 20120609, end: 20120616
  5. PREDNISOLONE [Concomitant]
     Indication: HYPEREOSINOPHILIC SYNDROME
     Dosage: 30 MG
     Route: 048
     Dates: start: 20120602, end: 20120609
  6. ALESION [Concomitant]
     Dosage: 20 MG, UNK
     Route: 048
     Dates: start: 20121226
  7. RINDERON [Concomitant]
     Indication: ECZEMA
     Dates: start: 20130327

REACTIONS (5)
  - Leukopenia [Recovered/Resolved]
  - Anaemia [Recovered/Resolved]
  - Thrombocytopenia [Recovered/Resolved]
  - Neutropenia [Recovered/Resolved]
  - Liver disorder [Not Recovered/Not Resolved]
